FAERS Safety Report 6460910-0 (Version None)
Quarter: 2009Q4

REPORT INFORMATION
  Report Type: 
  Country: None (occurrence: None)
  Receive Date: 20091130
  Receipt Date: 20091116
  Transmission Date: 20100525
  Serious: Yes (Hospitalization, Other)
  Sender: FDA-Public Use
  Company Number: JP-JNJCH-2009030712

PATIENT
  Age: 52 Year
  Sex: Female

DRUGS (6)
  1. CETIRIZINE HYDROCHLORIDE [Suspect]
     Indication: DRUG RASH WITH EOSINOPHILIA AND SYSTEMIC SYMPTOMS
     Dosage: TEXT:20 MG
     Route: 048
     Dates: start: 20090827, end: 20090904
  2. HYDROXYZINE [Suspect]
     Indication: DRUG USE FOR UNKNOWN INDICATION
     Dosage: TEXT:25 MG
     Route: 048
     Dates: start: 20090823, end: 20090914
  3. ZOLPIDEM TARTRATE [Suspect]
     Indication: INSOMNIA
     Dosage: TEXT:10 MG
     Route: 048
     Dates: start: 20090824, end: 20090914
  4. FEXOFENADINE [Suspect]
     Indication: DRUG USE FOR UNKNOWN INDICATION
     Dosage: TEXT:120 MG
     Route: 048
     Dates: start: 20090825, end: 20090914
  5. FAMOTIDINE [Suspect]
     Indication: GASTRIC DISORDER
     Dosage: TEXT:20 MG
     Route: 065
     Dates: start: 20090823, end: 20090902
  6. BETAMETHASONE [Concomitant]
     Indication: DRUG USE FOR UNKNOWN INDICATION
     Dosage: TEXT:UNKNOWN
     Route: 065
     Dates: start: 20090903, end: 20090915

REACTIONS (3)
  - LIVER DISORDER [None]
  - PYREXIA [None]
  - RASH [None]
